FAERS Safety Report 18172829 (Version 2)
Quarter: 2021Q3

REPORT INFORMATION
  Report Type: Spontaneous
  Country: US (occurrence: US)
  Receive Date: 20200820
  Receipt Date: 20210709
  Transmission Date: 20211014
  Serious: Yes (Other)
  Sender: FDA-Public Use
  Company Number: US-SA-2020SA218901

PATIENT
  Age: 48 Year
  Sex: Female

DRUGS (2)
  1. ZANTAC [Suspect]
     Active Substance: RANITIDINE HYDROCHLORIDE
     Indication: GASTROOESOPHAGEAL REFLUX DISEASE
  2. ZANTAC [Suspect]
     Active Substance: RANITIDINE HYDROCHLORIDE
     Indication: DYSPEPSIA
     Dosage: PERIODS OF NON?USE (AT LEAST 3 MONTHS WITHOUT USE)
     Dates: start: 201301, end: 201307

REACTIONS (3)
  - Hepatic cancer stage IV [Unknown]
  - Bladder cancer [Unknown]
  - Gallbladder cancer stage IV [Unknown]

NARRATIVE: CASE EVENT DATE: 201908
